FAERS Safety Report 5463432-9 (Version None)
Quarter: 2007Q3

REPORT INFORMATION
  Report Type: 
  Country: None (occurrence: None)
  Receive Date: 20070920
  Receipt Date: 20070726
  Transmission Date: 20080115
  Serious: Yes (Death, Other)
  Sender: FDA-Public Use
  Company Number: US-PURDUE-USA_2007_0029002

PATIENT
  Age: 46 Year
  Sex: Male

DRUGS (4)
  1. OXYCONTIN [Suspect]
     Indication: BACK PAIN
     Dosage: 20 MG, TID
     Dates: end: 20011210
  2. LORTAB [Concomitant]
     Dosage: 500 MG, BID
  3. HYDROCODONE [Concomitant]
     Dosage: 500 MG, BID
  4. LORCET-HD [Concomitant]
     Dosage: 650 MG, QID

REACTIONS (2)
  - DRUG DEPENDENCE [None]
  - MULTIPLE DRUG OVERDOSE ACCIDENTAL [None]
